FAERS Safety Report 9366104 (Version 2)
Quarter: 2013Q2

REPORT INFORMATION
  Report Type: Report from Study
  Country: US (occurrence: US)
  Receive Date: 20130625
  Receipt Date: 20130626
  Transmission Date: 20140414
  Serious: Yes (Other)
  Sender: FDA-Public Use
  Company Number: US-UCBSA-089761

PATIENT
  Age: 28 Year
  Sex: Female
  Weight: 64.2 kg

DRUGS (3)
  1. CIMZIA [Suspect]
     Indication: CROHN^S DISEASE
     Dosage: DOSE: 400 MG
     Route: 058
     Dates: start: 20111012
  2. IMURAN [Concomitant]
     Indication: CROHN^S DISEASE
     Dates: start: 201110
  3. CANASA [Concomitant]
     Dosage: 1000 MG EVERY TWO WEEKS

REACTIONS (2)
  - Abortion spontaneous [Recovered/Resolved]
  - Pregnancy [Recovered/Resolved]
